FAERS Safety Report 5395807-0 (Version None)
Quarter: 2007Q3

REPORT INFORMATION
  Report Type: 
  Country: None (occurrence: None)
  Receive Date: 20070724
  Receipt Date: 20070712
  Transmission Date: 20080115
  Serious: Yes (Hospitalization, Other)
  Sender: FDA-Public Use
  Company Number: US-PFIZER INC-2006121985

PATIENT
  Sex: Female
  Weight: 238.6 kg

DRUGS (7)
  1. CELEBREX [Suspect]
     Indication: ARTHRITIS
     Route: 048
  2. VIOXX [Suspect]
     Indication: ARTHRITIS
     Route: 048
     Dates: start: 20010101, end: 20040901
  3. HYDROCODONE BITARTRATE [Concomitant]
     Indication: PAIN IN EXTREMITY
  4. HYDROCODONE BITARTRATE [Concomitant]
     Indication: BACK PAIN
  5. FUROSEMIDE [Concomitant]
  6. LOTREL [Concomitant]
  7. POTASSIUM CHLORIDE [Concomitant]

REACTIONS (3)
  - CEREBROVASCULAR ACCIDENT [None]
  - DEPRESSION [None]
  - THROMBOSIS [None]
